FAERS Safety Report 13228797 (Version 1)
Quarter: 2017Q1

REPORT INFORMATION
  Report Type: Spontaneous
  Country: US (occurrence: US)
  Receive Date: 20170213
  Receipt Date: 20170213
  Transmission Date: 20170428
  Serious: No
  Sender: FDA-Public Use
  Company Number: US-JNJFOC-20170128612

PATIENT
  Sex: Male

DRUGS (2)
  1. PEPCID AC MAXIMUM STRENGTH [Suspect]
     Active Substance: FAMOTIDINE
     Indication: DYSPEPSIA
     Dosage: EVERY 24 HOURS; MAY TAKE 2 TABLETS (20MG/TABLET) IN 24 HRS AS NEEDED
     Route: 048
  2. PEPCID AC MAXIMUM STRENGTH [Suspect]
     Active Substance: FAMOTIDINE
     Indication: GASTROOESOPHAGEAL REFLUX DISEASE
     Dosage: EVERY 24 HOURS; MAY TAKE 2 TABLETS (20MG/TABLET) IN 24 HRS AS NEEDED
     Route: 048

REACTIONS (1)
  - Drug effect incomplete [Unknown]
